FAERS Safety Report 5227362-X (Version None)
Quarter: 2007Q1

REPORT INFORMATION
  Report Type: 
  Country: None (occurrence: None)
  Receive Date: 20070202
  Receipt Date: 20070118
  Transmission Date: 20070707
  Serious: Yes (Hospitalization)
  Sender: FDA-Public Use
  Company Number: DE-BAXTER-2006BH013474

PATIENT
  Age: 83 Year
  Sex: Male
  Weight: 79 kg

DRUGS (28)
  1. IMMUNE GLOBULIN INTRAVENOUS (HUMAN) [Suspect]
     Indication: THROMBOCYTOPENIA
     Route: 042
     Dates: start: 20060917, end: 20060917
  2. IMMUNE GLOBULIN INTRAVENOUS (HUMAN) [Suspect]
     Route: 042
     Dates: start: 20060916, end: 20060916
  3. ELECTROLYTE SOLUTIONS [Concomitant]
     Dates: start: 20060917, end: 20060917
  4. CIPROBAY [Concomitant]
     Indication: URINARY TRACT INFECTION
  5. ACETYLCYSTEINE [Concomitant]
     Route: 042
     Dates: start: 20060906, end: 20060907
  6. RED BLOOD CELLS [Concomitant]
     Route: 042
     Dates: start: 20060906
  7. PERFALGAN [Concomitant]
     Route: 042
     Dates: start: 20060906, end: 20060907
  8. PANTOZOL [Concomitant]
     Route: 042
     Dates: start: 20060906, end: 20060906
  9. PREDNISOLONE [Concomitant]
     Dates: start: 20060906, end: 20060917
  10. FAUSTAN [Concomitant]
     Route: 042
     Dates: start: 20060906
  11. HALDOL [Concomitant]
     Route: 042
     Dates: start: 20060907, end: 20060909
  12. PROTHAZIN [Concomitant]
     Route: 042
     Dates: start: 20060909, end: 20060909
  13. PARACEFAN [Concomitant]
     Route: 042
     Dates: start: 20060910, end: 20060910
  14. INSUMAN RAPID /GFR/ [Concomitant]
     Route: 042
     Dates: start: 20060911, end: 20060913
  15. CALCIUM [Concomitant]
     Route: 042
     Dates: start: 20060911, end: 20060913
  16. AMINO ACIDS NOS [Concomitant]
     Route: 042
     Dates: start: 20060914
  17. VITAMINS NOS [Concomitant]
     Route: 042
     Dates: start: 20060914
  18. ACTRAPID HUMAN [Concomitant]
     Route: 058
     Dates: start: 20060916, end: 20060916
  19. LACTULOSE [Concomitant]
     Route: 048
     Dates: start: 20060906
  20. SUCRALFATE [Concomitant]
     Route: 048
     Dates: start: 20060906
  21. KALINOR [Concomitant]
     Route: 048
     Dates: start: 20060907, end: 20060907
  22. CALCIUM [Concomitant]
     Route: 048
     Dates: start: 20060914
  23. PLATELETS [Concomitant]
     Route: 042
     Dates: start: 20060913, end: 20060913
  24. SEROQUEL [Concomitant]
     Route: 048
     Dates: start: 20060914
  25. ACETYLCYSTEINE [Concomitant]
     Route: 048
     Dates: start: 20060914
  26. PANTOZOL [Concomitant]
     Route: 048
     Dates: start: 20060914
  27. OBSIDAN [Concomitant]
     Route: 048
     Dates: start: 20060914
  28. TAVOR [Concomitant]
     Route: 048
     Dates: start: 20060915

REACTIONS (6)
  - BLOOD PRESSURE INCREASED [None]
  - CHILLS [None]
  - ESCHERICHIA URINARY TRACT INFECTION [None]
  - HEART RATE INCREASED [None]
  - PYREXIA [None]
  - URINARY TRACT INFECTION [None]
